FAERS Safety Report 7943533-3 (Version None)
Quarter: 2011Q4

REPORT INFORMATION
  Report Type: 
  Country: None (occurrence: None)
  Receive Date: 20111128
  Receipt Date: 20111123
  Transmission Date: 20120403
  Serious: Yes (Other)
  Sender: FDA-Public Use
  Company Number: GXKR2011DE003393

PATIENT
  Age: 78 Year
  Sex: Female

DRUGS (2)
  1. LOSARTAN POTASSIUM [Suspect]
     Dosage: 100 MG, UNK
     Route: 048
  2. BISOPROLOL FUMARATE [Suspect]
     Route: 048

REACTIONS (3)
  - ALOPECIA [None]
  - PSORIASIS [None]
  - DIZZINESS [None]
